FAERS Safety Report 5089238-0 (Version None)
Quarter: 2006Q3

REPORT INFORMATION
  Report Type: 
  Country: None (occurrence: None)
  Receive Date: 20060825
  Receipt Date: 20060815
  Transmission Date: 20061208
  Serious: Yes (Hospitalization)
  Sender: FDA-Public Use
  Company Number: PL-ABBOTT-06P-129-0341487-00

PATIENT
  Age: 38 Year
  Sex: Female
  Weight: 52 kg

DRUGS (4)
  1. DEPAKENE [Suspect]
     Indication: DRUG USE FOR UNKNOWN INDICATION
  2. DEPAKENE [Suspect]
  3. PHENOBARBITAL TAB [Concomitant]
  4. TETRAHYDROCANNABINOL [Concomitant]

REACTIONS (3)
  - INTENTIONAL OVERDOSE [None]
  - POISONING [None]
  - SUICIDE ATTEMPT [None]
